FAERS Safety Report 21248448 (Version 3)
Quarter: 2022Q3

REPORT INFORMATION
  Report Type: Report from Study
  Country: CN (occurrence: CN)
  Receive Date: 20220824
  Receipt Date: 20220916
  Transmission Date: 20221027
  Serious: Yes (Hospitalization)
  Sender: FDA-Public Use
  Company Number: CN-PFIZER INC-PV202200042938

PATIENT
  Age: 52 Year
  Sex: Male
  Weight: 72.8 kg

DRUGS (3)
  1. LORLATINIB [Suspect]
     Active Substance: LORLATINIB
     Indication: Lung neoplasm malignant
     Dosage: 100 MG, 1X/DAY
     Route: 048
     Dates: start: 20190819, end: 20220813
  2. CEFUROXIME [Concomitant]
     Active Substance: CEFUROXIME
     Indication: Oedema
     Dosage: 40 MG, BID PLUG CRUNCHING OF CORNFLAKES
     Route: 048
     Dates: start: 20220705
  3. SPIRONOLACTONE [Concomitant]
     Active Substance: SPIRONOLACTONE
     Indication: Oedema
     Dosage: 40 MG, BID
     Route: 048
     Dates: start: 20220705

REACTIONS (2)
  - Pericarditis constrictive [Recovered/Resolved]
  - Condition aggravated [Recovered/Resolved]

NARRATIVE: CASE EVENT DATE: 20220811
